FAERS Safety Report 10175769 (Version 1)
Quarter: 2014Q2

REPORT INFORMATION
  Report Type: Spontaneous
  Country: US (occurrence: None)
  Receive Date: 20140425
  Receipt Date: 20140425
  Transmission Date: 20141212
  Serious: No
  Sender: FDA-Public Use
  Company Number: AP356-00550-SPO-US

PATIENT
  Age: 77 Year
  Sex: Male
  Weight: 84.09 kg

DRUGS (3)
  1. BELVIQ [Suspect]
     Indication: WEIGHT DECREASED
     Route: 048
     Dates: start: 20140307, end: 20140321
  2. HIGH CHOLESTEROL MEDICATION (CHOLESTEROL - AND TRIGLYCERIDE REDUCERS) [Concomitant]
  3. HEART MEDICATION (CARDIOVASCULAR SYSTEM DRUGS)? [Concomitant]

REACTIONS (1)
  - Drug ineffective [None]
